FAERS Safety Report 9525183 (Version 1)
Quarter: 2013Q1

REPORT INFORMATION
  Report Type: Spontaneous
  Country: US (occurrence: None)
  Receive Date: 20130314
  Receipt Date: 20130314
  Transmission Date: 20140127
  Serious: No
  Sender: FDA-Public Use
  Company Number: 1031USA011901

PATIENT
  Age: 52 Year
  Sex: Male
  Weight: 72.6 kg

DRUGS (4)
  1. VICTRELIS (BOCEPREVIR) CAPSULE, 200MG [Suspect]
     Dosage: 4 DF, TID, ORAL
     Route: 048
  2. PEGASYS [Suspect]
  3. RIBAPAK (RIBAVIRIN) [Suspect]
     Dosage: 1000/DAY
  4. CEPHALEXIN [Concomitant]

REACTIONS (1)
  - Groin infection [None]
